FAERS Safety Report 7549425-6 (Version None)
Quarter: 2011Q2

REPORT INFORMATION
  Report Type: 
  Country: None (occurrence: None)
  Receive Date: 20110615
  Receipt Date: 20040813
  Transmission Date: 20111010
  Serious: Yes (Hospitalization, Other)
  Sender: FDA-Public Use
  Company Number: PHFR2004GB02888

PATIENT
  Sex: Male

DRUGS (3)
  1. GAVISCON [Concomitant]
     Indication: DYSPEPSIA
     Dosage: 40 ML, QD
     Route: 048
     Dates: start: 20000201
  2. CLOZAPINE [Suspect]
     Indication: SCHIZOPHRENIA
     Dosage: 700 MG, QD
     Route: 048
     Dates: start: 19981209, end: 20040716
  3. LACTULOSE [Concomitant]
     Indication: CONSTIPATION
     Dosage: 10 ML, QD
     Route: 048
     Dates: start: 19981029

REACTIONS (19)
  - CIRCULATORY COLLAPSE [None]
  - DEHYDRATION [None]
  - BLOOD CREATININE INCREASED [None]
  - ASPARTATE AMINOTRANSFERASE INCREASED [None]
  - NAUSEA [None]
  - SEPTIC SHOCK [None]
  - BLOOD BILIRUBIN INCREASED [None]
  - GASTROINTESTINAL HAEMORRHAGE [None]
  - WHITE BLOOD CELL COUNT INCREASED [None]
  - RENAL FAILURE [None]
  - AGITATION [None]
  - HYPONATRAEMIA [None]
  - CONFUSIONAL STATE [None]
  - ADDISON'S DISEASE [None]
  - VOMITING [None]
  - BLOOD UREA INCREASED [None]
  - LOW DENSITY LIPOPROTEIN INCREASED [None]
  - CARDIAC ARREST [None]
  - BLOOD CREATINE PHOSPHOKINASE INCREASED [None]
